FAERS Safety Report 13418876 (Version 2)
Quarter: 2017Q2

REPORT INFORMATION
  Report Type: Spontaneous
  Country: JP (occurrence: JP)
  Receive Date: 20170407
  Receipt Date: 20170420
  Transmission Date: 20170830
  Serious: Yes (Hospitalization)
  Sender: FDA-Public Use
  Company Number: JP-TAKEDA-2016TJP025464AA

PATIENT
  Age: 63 Year
  Sex: Male
  Weight: 65 kg

DRUGS (7)
  1. ROZEREM [Suspect]
     Active Substance: RAMELTEON
     Indication: SLEEP DISORDER
     Dosage: 8 MG, QD
     Route: 048
     Dates: start: 20160523, end: 20160607
  2. PAXIL [Suspect]
     Active Substance: PAROXETINE HYDROCHLORIDE
     Indication: ANXIETY
     Dosage: 10 MG, QD
     Route: 048
     Dates: start: 20160509, end: 20160511
  3. PAXIL [Suspect]
     Active Substance: PAROXETINE HYDROCHLORIDE
     Indication: IRRITABILITY
     Dosage: 20 MG, QD
     Route: 048
     Dates: start: 20160512, end: 20160518
  4. PAXIL [Suspect]
     Active Substance: PAROXETINE HYDROCHLORIDE
     Indication: SOMATIC HALLUCINATION
     Dosage: 30 MG, QD
     Route: 048
     Dates: start: 20160519, end: 20160519
  5. ROZEREM [Suspect]
     Active Substance: RAMELTEON
     Dosage: 4 MG, QD
     Route: 048
     Dates: start: 20160608, end: 20160613
  6. PAXIL [Suspect]
     Active Substance: PAROXETINE HYDROCHLORIDE
     Dosage: 10 MG, QD
     Route: 048
     Dates: start: 20160525, end: 20160620
  7. PAXIL [Suspect]
     Active Substance: PAROXETINE HYDROCHLORIDE
     Indication: PROPHYLAXIS
     Dosage: 20 MG, QD
     Route: 048
     Dates: start: 20160520, end: 20160524

REACTIONS (5)
  - Altered state of consciousness [Recovered/Resolved]
  - Rash [Recovered/Resolved]
  - Hallucination, visual [Recovered/Resolved]
  - Disorientation [Recovered/Resolved]
  - Prescribed underdose [Unknown]

NARRATIVE: CASE EVENT DATE: 20160524
